FAERS Safety Report 7050460-5 (Version None)
Quarter: 2010Q4

REPORT INFORMATION
  Report Type: 
  Country: None (occurrence: None)
  Receive Date: 20101018
  Receipt Date: 20101011
  Transmission Date: 20110411
  Serious: Yes (Death, Hospitalization)
  Sender: FDA-Public Use
  Company Number: DE-CEPHALON-2010005441

PATIENT
  Sex: Female

DRUGS (5)
  1. EFFENTORA [Suspect]
     Indication: BREAKTHROUGH PAIN
     Route: 002
     Dates: start: 20090611, end: 20090616
  2. EFFENTORA [Suspect]
     Route: 002
     Dates: start: 20090617, end: 20090916
  3. MORPHINE [Concomitant]
     Indication: CANCER PAIN
     Route: 042
     Dates: start: 20090916
  4. FENTANYL-75 [Concomitant]
     Indication: CANCER PAIN
     Route: 062
  5. IBUPROFEN [Concomitant]
     Indication: CANCER PAIN

REACTIONS (3)
  - COMA [None]
  - DEATH [None]
  - GENERAL PHYSICAL HEALTH DETERIORATION [None]
